FAERS Safety Report 8993502 (Version 2)
Quarter: 2013Q1

REPORT INFORMATION
  Report Type: Spontaneous
  Country: US (occurrence: US)
  Receive Date: 20130102
  Receipt Date: 20130110
  Transmission Date: 20140127
  Serious: Yes (Hospitalization)
  Sender: FDA-Public Use
  Company Number: US-JNJFOC-20121213814

PATIENT
  Age: 81 Year
  Sex: Female
  Weight: 62 kg

DRUGS (5)
  1. DOXIL [Suspect]
     Indication: OVARIAN CANCER
     Route: 042
     Dates: start: 20090909, end: 20091116
  2. EC145 [Suspect]
     Indication: OVARIAN CANCER
     Dosage: EVERY OTHER WEEK
     Route: 042
     Dates: start: 20090909, end: 20091120
  3. UNKNOWN MEDICATION [Suspect]
     Indication: SINGLE PHOTON EMISSION COMPUTERISED TOMOGRAM
     Route: 042
     Dates: start: 20090831, end: 20090831
  4. ATENOLOL [Concomitant]
     Indication: PROPHYLAXIS
     Route: 065
  5. PRILOSEC [Concomitant]
     Indication: PROPHYLAXIS
     Route: 065

REACTIONS (1)
  - Infusion site extravasation [Recovered/Resolved]
